FAERS Safety Report 8436887-5 (Version None)
Quarter: 2012Q2

REPORT INFORMATION
  Report Type: 
  Country: None (occurrence: None)
  Receive Date: 20120614
  Receipt Date: 20120531
  Transmission Date: 20120825
  Serious: Yes (Hospitalization, Other)
  Sender: FDA-Public Use
  Company Number: US-FRI-1000030971

PATIENT
  Sex: Female
  Weight: 86.18 kg

DRUGS (8)
  1. COZAAR [Suspect]
     Indication: HYPERTENSION
     Dosage: 50 MG
     Dates: start: 20120503
  2. THYROID TAB [Suspect]
     Indication: AUTOIMMUNE THYROIDITIS
     Dosage: 30 MG
     Dates: start: 20110502, end: 20110516
  3. CLONAZEPAM [Suspect]
     Indication: ANXIETY
     Dates: start: 20120503
  4. ZYPREXA [Suspect]
     Indication: AFFECTIVE DISORDER
     Dosage: 5 MG
  5. THYROID TAB [Suspect]
     Dosage: 60 MG
     Dates: start: 20110517
  6. PRISTIQ [Suspect]
     Indication: DEPRESSION
     Dates: start: 20120514
  7. CLONAZEPAM [Suspect]
     Indication: PANIC ATTACK
  8. PROZAC [Suspect]
     Indication: DEPRESSION
     Dosage: 10 MG
     Dates: start: 20120506

REACTIONS (9)
  - HIGH DENSITY LIPOPROTEIN DECREASED [None]
  - EYE PAIN [None]
  - HEADACHE [None]
  - MOVEMENT DISORDER [None]
  - WEIGHT DECREASED [None]
  - BLOOD TRIGLYCERIDES INCREASED [None]
  - BLOOD CHOLESTEROL INCREASED [None]
  - ABDOMINAL DISCOMFORT [None]
  - DEPRESSION [None]
